FAERS Safety Report 15634414 (Version 1)
Quarter: 2018Q4

REPORT INFORMATION
  Report Type: Report from Study
  Country: IN (occurrence: IN)
  Receive Date: 20181119
  Receipt Date: 20181119
  Transmission Date: 20190205
  Serious: Yes (Other)
  Sender: FDA-Public Use
  Company Number: IN-SA-2018SA311243

PATIENT
  Age: 61 Year
  Sex: Female
  Weight: 70 kg

DRUGS (3)
  1. INSULIN GLARGINE [Suspect]
     Active Substance: INSULIN GLARGINE
     Indication: DIABETES MELLITUS
     Dosage: UNK UNK, UNK
     Route: 058
     Dates: start: 20180828
  2. GEMIGLIPTIN [Suspect]
     Active Substance: GEMIGLIPTIN
     Indication: DIABETES MELLITUS
     Dosage: UNK UNK, UNK
     Route: 048
     Dates: start: 20180828
  3. INSULIN LISPRO [Suspect]
     Active Substance: INSULIN LISPRO
     Indication: DIABETES MELLITUS
     Dosage: UNK UNK, UNK
     Route: 058
     Dates: start: 20180828

REACTIONS (2)
  - Fracture [Unknown]
  - Hypoglycaemia [Unknown]

NARRATIVE: CASE EVENT DATE: 20181105
